FAERS Safety Report 4752204-6 (Version None)
Quarter: 2005Q3

REPORT INFORMATION
  Report Type: 
  Country: None (occurrence: None)
  Receive Date: 20050825
  Receipt Date: 20050712
  Transmission Date: 20060218
  Serious: Yes (Other)
  Sender: FDA-Public Use
  Company Number: PHBS2005BR10077

PATIENT
  Age: 32 Year
  Sex: Female

DRUGS (2)
  1. VOLTAREN [Suspect]
     Indication: PHARYNGOLARYNGEAL PAIN
     Dosage: 100 MG/DAY
     Route: 048
     Dates: start: 20050711, end: 20050711
  2. BRONCHO-VAXOM [Concomitant]
     Indication: PHARYNGOLARYNGEAL PAIN
     Dosage: 7 MG, BID
     Route: 048

REACTIONS (1)
  - BLOOD URINE PRESENT [None]
